FAERS Safety Report 6941787-3 (Version None)
Quarter: 2010Q3

REPORT INFORMATION
  Report Type: 
  Country: None (occurrence: None)
  Receive Date: 20100826
  Receipt Date: 20100603
  Transmission Date: 20110219
  Serious: Yes (Hospitalization)
  Sender: FDA-Public Use
  Company Number: US-SHIRE-SPV1-2010-01060

PATIENT
  Sex: Female
  Weight: 52.154 kg

DRUGS (6)
  1. ADDERALL XR 10 [Suspect]
     Indication: ATTENTION DEFICIT/HYPERACTIVITY DISORDER
     Dosage: 15 MG, 2X/DAY:BID
     Route: 048
     Dates: start: 20070101
  2. ADDERALL XR 10 [Suspect]
     Indication: SOCIAL PHOBIA
  3. LEXAPRO [Concomitant]
     Indication: PRODUCT USED FOR UNKNOWN INDICATION
     Dosage: 20 MG, 1X/DAY:QD
     Route: 048
     Dates: start: 20070101
  4. TRAZODONE HCL [Concomitant]
     Indication: PRODUCT USED FOR UNKNOWN INDICATION
     Dosage: 100 MG, 1X/DAY:QD
     Route: 048
     Dates: start: 20070101
  5. KLONOPIN [Concomitant]
     Indication: ANXIETY
     Dosage: .1 MG, 1X/DAY:QD
     Route: 048
  6. YASMIN [Concomitant]
     Indication: ORAL CONTRACEPTION
     Dosage: UNK, 1X/DAY:QD
     Route: 048
     Dates: start: 20060101

REACTIONS (5)
  - DISTURBANCE IN ATTENTION [None]
  - DRUG PRESCRIBING ERROR [None]
  - HOSPITALISATION [None]
  - INAPPROPRIATE SCHEDULE OF DRUG ADMINISTRATION [None]
  - PRODUCT QUALITY ISSUE [None]
